FAERS Safety Report 4938620-8 (Version None)
Quarter: 2006Q1

REPORT INFORMATION
  Report Type: 
  Country: None (occurrence: None)
  Receive Date: 20060309
  Receipt Date: 20060214
  Transmission Date: 20060701
  Serious: Yes (Hospitalization, Disabling, Other)
  Sender: FDA-Public Use
  Company Number: MX-AVENTIS-200611509GDDC

PATIENT
  Age: 63 Year
  Sex: Male
  Weight: 68 kg

DRUGS (3)
  1. LANTUS [Suspect]
     Indication: DIABETES MELLITUS NON-INSULIN-DEPENDENT
     Dosage: DOSE: 40-45 (APPROXIMATELY)
     Route: 058
     Dates: start: 20050101
  2. GLIBENCLAMIDE [Concomitant]
     Indication: DIABETES MELLITUS NON-INSULIN-DEPENDENT
     Dosage: DOSE: UNK
  3. METFORMIN [Concomitant]
     Indication: DIABETES MELLITUS NON-INSULIN-DEPENDENT
     Dosage: DOSE: UNK

REACTIONS (3)
  - DRUG INEFFECTIVE [None]
  - LEG AMPUTATION [None]
  - LOCALISED INFECTION [None]
